FAERS Safety Report 8941417 (Version 3)
Quarter: 2013Q1

REPORT INFORMATION
  Report Type: Report from Study
  Country: US (occurrence: US)
  Receive Date: 20121203
  Receipt Date: 20130117
  Transmission Date: 20140127
  Serious: Yes (Death, Other)
  Sender: FDA-Public Use
  Company Number: US-ROCHE-1158206

PATIENT
  Age: 81 Year
  Sex: Male

DRUGS (1)
  1. CAPECITABINE [Suspect]
     Indication: COLON CANCER
     Route: 065

REACTIONS (2)
  - Death [Fatal]
  - Disease progression [Unknown]
